FAERS Safety Report 21055070 (Version 1)
Quarter: 2022Q3

REPORT INFORMATION
  Report Type: Spontaneous
  Country: US (occurrence: US)
  Receive Date: 20220707
  Receipt Date: 20220707
  Transmission Date: 20221027
  Serious: No
  Sender: FDA-Public Use
  Company Number: US-GRUNENTHAL-2021-272510

PATIENT
  Sex: Male

DRUGS (1)
  1. QUTENZA [Suspect]
     Active Substance: CAPSAICIN
     Indication: Pain
     Dosage: 1 DOSAGE FORM
     Route: 061
     Dates: start: 20211210

REACTIONS (1)
  - Pain [Unknown]
